FAERS Safety Report 24535386 (Version 1)
Quarter: 2024Q4

REPORT INFORMATION
  Report Type: Spontaneous
  Country: US (occurrence: None)
  Receive Date: 20241021
  Receipt Date: 20241021
  Transmission Date: 20250115
  Serious: Yes (Life-Threatening, Disabling)
  Sender: Public
  Company Number: None

PATIENT
  Age: 52 Year
  Sex: Female

DRUGS (30)
  1. TYLENOL [Suspect]
     Active Substance: ACETAMINOPHEN
  2. AZELASTINE [Concomitant]
     Active Substance: AZELASTINE
  3. BUPROPION [Concomitant]
     Active Substance: BUPROPION
  4. CLOPIDOGREL [Concomitant]
     Active Substance: CLOPIDOGREL BISULFATE
  5. CYCLOBENZAPRINE [Concomitant]
     Active Substance: CYCLOBENZAPRINE
  6. Divaloproex [Concomitant]
  7. FAMOTIDINE [Concomitant]
     Active Substance: FAMOTIDINE
  8. FEXOFENADINE [Concomitant]
     Active Substance: FEXOFENADINE HYDROCHLORIDE
  9. FLUTICASONE PROPIONATE [Concomitant]
     Active Substance: FLUTICASONE PROPIONATE
  10. FUROSEMIDE [Concomitant]
     Active Substance: FUROSEMIDE
  11. GABAPENTIN [Concomitant]
     Active Substance: GABAPENTIN
  12. ISOSORBIDE DINITRATE [Concomitant]
     Active Substance: ISOSORBIDE DINITRATE
  13. LORAZEPAM [Concomitant]
     Active Substance: LORAZEPAM
  14. Mupirocin Ointment USP 2%. Nitroglycerin [Concomitant]
  15. NYSTATIN [Concomitant]
     Active Substance: NYSTATIN
  16. Ozempic Promethazine [Concomitant]
  17. RABEPRAZOLE [Concomitant]
     Active Substance: RABEPRAZOLE
  18. ROSUVASTATIN [Concomitant]
     Active Substance: ROSUVASTATIN
  19. TOPIRAMATE [Concomitant]
     Active Substance: TOPIRAMATE
  20. UBRELVY [Concomitant]
     Active Substance: UBROGEPANT
  21. ASPIRIN [Concomitant]
     Active Substance: ASPIRIN
  22. CALCIUM CITRATE [Concomitant]
     Active Substance: CALCIUM CITRATE
  23. GAS-X [Concomitant]
     Active Substance: DIMETHICONE
  24. IBUPROFEN [Concomitant]
     Active Substance: IBUPROFEN
  25. IMODIUM [Concomitant]
     Active Substance: LOPERAMIDE HYDROCHLORIDE
  26. Nature Made Completely with Iron Multivitamin [Concomitant]
  27. Nature Made Fish Oil + Omega 3 [Concomitant]
  28. NATURE MADE VITAMIN C [Concomitant]
  29. VITAMIN D3 [Concomitant]
     Active Substance: CHOLECALCIFEROL
  30. Systane Hydration PF [Concomitant]

REACTIONS (3)
  - Gait disturbance [None]
  - Hyperhidrosis [None]
  - Blood glucose decreased [None]

NARRATIVE: CASE EVENT DATE: 20241021
